FAERS Safety Report 9809371 (Version 1)
Quarter: 2014Q1

REPORT INFORMATION
  Report Type: Spontaneous
  Country: US (occurrence: US)
  Receive Date: 20140110
  Receipt Date: 20140110
  Transmission Date: 20141002
  Serious: No
  Sender: FDA-Public Use
  Company Number: US-009507513-1401USA003164

PATIENT
  Sex: Female

DRUGS (1)
  1. IMPLANON [Suspect]
     Dosage: EVERY 3 YEARS, 1 ROD
     Route: 059

REACTIONS (3)
  - Menorrhagia [Unknown]
  - Dysmenorrhoea [Unknown]
  - Burning sensation [Unknown]
